FAERS Safety Report 8555995-1 (Version None)
Quarter: 2012Q3

REPORT INFORMATION
  Report Type: 
  Country: None (occurrence: None)
  Receive Date: 20120719
  Receipt Date: 20120706
  Transmission Date: 20120928
  Serious: Yes (Death, Other)
  Sender: FDA-Public Use
  Company Number: 1316775

PATIENT
  Age: 47 Year
  Sex: Female
  Weight: 95 kg

DRUGS (3)
  1. CAPACITABINE [Concomitant]
  2. AVASTIN [Suspect]
     Indication: BREAST CANCER METASTATIC
     Dosage: 00 MBQ MEGABECQUEREL(S) ( 21 DAY ) 1) INTRAVENOUS (NOT OTHERWISE SPECIFIED)
     Route: 042
  3. PACLITAXEL [Suspect]
     Indication: BREAST CANCER METASTATIC

REACTIONS (4)
  - METASTASES TO CENTRAL NERVOUS SYSTEM [None]
  - CIRCULATORY COLLAPSE [None]
  - PULMONARY EMBOLISM [None]
  - NEUROPATHY PERIPHERAL [None]
